FAERS Safety Report 8600189-4 (Version None)
Quarter: 2012Q3

REPORT INFORMATION
  Report Type: 
  Country: None (occurrence: None)
  Receive Date: 20120817
  Receipt Date: 20120807
  Transmission Date: 20120928
  Serious: Yes (Other)
  Sender: FDA-Public Use
  Company Number: US-BIOGENIDEC-2012BI030350

PATIENT
  Age: 64 Year
  Sex: Female

DRUGS (1)
  1. AVONEX [Suspect]
     Indication: MULTIPLE SCLEROSIS
     Route: 030
     Dates: start: 20010608

REACTIONS (9)
  - THROMBOSIS [None]
  - INTERVERTEBRAL DISC PROTRUSION [None]
  - SPINAL COMPRESSION FRACTURE [None]
  - DYSPNOEA [None]
  - PALPITATIONS [None]
  - PAIN [None]
  - HEAD INJURY [None]
  - BALANCE DISORDER [None]
  - HEADACHE [None]
